FAERS Safety Report 22115273 (Version 1)
Quarter: 2023Q1

REPORT INFORMATION
  Report Type: Spontaneous
  Country: US (occurrence: None)
  Receive Date: 20230318
  Receipt Date: 20230318
  Transmission Date: 20230418
  Serious: No
  Sender: FDA-Public Use
  Company Number: None

PATIENT
  Age: 46 Year
  Sex: Female
  Weight: 76.05 kg

DRUGS (6)
  1. OZEMPIC [Suspect]
     Active Substance: SEMAGLUTIDE
     Indication: Body mass index increased
     Dosage: OTHER QUANTITY : 1 INJECTION(S);?OTHER FREQUENCY : WEEKLY;?
     Route: 058
  2. OZEMPIC [Suspect]
     Active Substance: SEMAGLUTIDE
     Indication: Multimorbidity
  3. Junel 1/20 qd [Concomitant]
  4. Citalopram 20 mg qd [Concomitant]
  5. Atorvastatin 10 mg qd [Concomitant]
  6. Ibuprofen 200 mg prn HA [Concomitant]

REACTIONS (3)
  - Anxiety [None]
  - Nervousness [None]
  - Therapy change [None]

NARRATIVE: CASE EVENT DATE: 20230108
